FAERS Safety Report 13612984 (Version 2)
Quarter: 2017Q4

REPORT INFORMATION
  Report Type: Spontaneous
  Country: FI (occurrence: FI)
  Receive Date: 20170605
  Receipt Date: 20171201
  Transmission Date: 20180320
  Serious: Yes (Other)
  Sender: FDA-Public Use
  Company Number: FI-SA-2017SA057064

PATIENT
  Age: 75 Year
  Sex: Female

DRUGS (12)
  1. FURESIS [Concomitant]
     Active Substance: FUROSEMIDE
     Indication: BLOOD PRESSURE MEASUREMENT
  2. DILZEM [Concomitant]
     Active Substance: DILTIAZEM
     Indication: BLOOD PRESSURE MEASUREMENT
  3. ATACAND [Concomitant]
     Active Substance: CANDESARTAN CILEXETIL
     Indication: BLOOD PRESSURE MEASUREMENT
  4. MAREVAN [Concomitant]
     Active Substance: WARFARIN SODIUM
     Indication: CARDIAC FAILURE
  5. TRAJENTA [Concomitant]
     Active Substance: LINAGLIPTIN
  6. NOVONORM [Concomitant]
     Active Substance: REPAGLINIDE
  7. LANTUS [Suspect]
     Active Substance: INSULIN GLARGINE
     Indication: TYPE 2 DIABETES MELLITUS
     Dosage: DOSE:?9-12 UNITS PER DAY DOSE:10 UNIT(S)
     Route: 051
     Dates: start: 20170203, end: 201703
  8. METFORMIN [Concomitant]
     Active Substance: METFORMIN HYDROCHLORIDE
  9. JARDIANCE [Concomitant]
     Active Substance: EMPAGLIFLOZIN
  10. DIGOXIN. [Concomitant]
     Active Substance: DIGOXIN
     Indication: CARDIAC FAILURE
  11. NOVONORM [Concomitant]
     Active Substance: REPAGLINIDE
     Dates: start: 20170330
  12. FURESIS [Concomitant]
     Active Substance: FUROSEMIDE
     Indication: BLOOD PRESSURE MEASUREMENT

REACTIONS (13)
  - Cough [Recovered/Resolved]
  - Peripheral swelling [Unknown]
  - Secretion discharge [Recovered/Resolved]
  - Scleritis [Unknown]
  - Dyspnoea [Recovered/Resolved]
  - Pain in extremity [Not Recovered/Not Resolved]
  - Dry mouth [Unknown]
  - Exercise tolerance decreased [Not Recovered/Not Resolved]
  - Eye symptom [Unknown]
  - Weight increased [Unknown]
  - Palpitations [Unknown]
  - Blood uric acid increased [Unknown]
  - Back pain [Recovered/Resolved]

NARRATIVE: CASE EVENT DATE: 2017
